FAERS Safety Report 10306563 (Version 1)
Quarter: 2014Q3

REPORT INFORMATION
  Report Type: Spontaneous
  Country: GB (occurrence: None)
  Receive Date: 20140711
  Receipt Date: 20140711
  Transmission Date: 20150326
  Serious: Yes (Other)
  Sender: FDA-Public Use
  Company Number: FK201402663

PATIENT
  Age: 54 Year
  Sex: Female
  Weight: 112 kg

DRUGS (5)
  1. BENDROFLUMETHIAZIDE (BENDROFLUMETHIAZIDE) [Concomitant]
     Active Substance: BENDROFLUMETHIAZIDE
  2. ELLESTE-SOLO (ESTRADIOL) [Concomitant]
  3. NAPROXEN (NAPROXEN) [Concomitant]
     Active Substance: NAPROXEN
  4. OMEPRAZOLE (OMEPRAZOLE) [Concomitant]
     Active Substance: OMEPRAZOLE
     Indication: OEDEMA
  5. FUROSEMIDE. [Suspect]
     Active Substance: FUROSEMIDE
     Indication: OEDEMA
     Route: 048
     Dates: start: 20140605, end: 20140620

REACTIONS (1)
  - Colitis [None]

NARRATIVE: CASE EVENT DATE: 20140609
